FAERS Safety Report 24755410 (Version 7)
Quarter: 2025Q2

REPORT INFORMATION
  Report Type: Report from Study
  Country: US (occurrence: US)
  Receive Date: 20241219
  Receipt Date: 20250618
  Transmission Date: 20250717
  Serious: Yes (Hospitalization, Other)
  Sender: PFIZER
  Company Number: US-PFIZER INC-202400326045

PATIENT
  Age: 75 Year
  Sex: Female

DRUGS (1)
  1. VYNDAMAX [Suspect]
     Active Substance: TAFAMIDIS
     Dosage: TAKE ONE CAPSULE BY MOUTH ONCE A DAY
     Route: 048
     Dates: start: 20240731

REACTIONS (8)
  - Cardiac failure congestive [Unknown]
  - Heart rate irregular [Not Recovered/Not Resolved]
  - Dyspnoea [Not Recovered/Not Resolved]
  - Infection [Unknown]
  - Fluid retention [Unknown]
  - Peripheral swelling [Unknown]
  - Dialysis [Unknown]
  - Product dose omission issue [Unknown]
